FAERS Safety Report 17364845 (Version 1)
Quarter: 2020Q1

REPORT INFORMATION
  Report Type: Spontaneous
  Country: US (occurrence: US)
  Receive Date: 20200204
  Receipt Date: 20200204
  Transmission Date: 20200409
  Serious: Yes (Hospitalization)
  Sender: FDA-Public Use
  Company Number: US-ROCHE-2540944

PATIENT
  Age: 30 Year
  Sex: Female

DRUGS (11)
  1. FLUCONAZOLE. [Suspect]
     Active Substance: FLUCONAZOLE
     Indication: ACQUIRED IMMUNODEFICIENCY SYNDROME
     Route: 065
  2. ZALCITABINE [Concomitant]
     Active Substance: ZALCITABINE
     Indication: ACQUIRED IMMUNODEFICIENCY SYNDROME
  3. INDINAVIR [Concomitant]
     Active Substance: INDINAVIR
     Indication: ACQUIRED IMMUNODEFICIENCY SYNDROME
  4. SAQUINAVIR [Suspect]
     Active Substance: SAQUINAVIR
     Indication: ACQUIRED IMMUNODEFICIENCY SYNDROME
     Route: 065
     Dates: start: 199805
  5. SULFAMETHOXAZOLE/TRIMETHOPRIM [Concomitant]
     Active Substance: SULFAMETHOXAZOLE\TRIMETHOPRIM
  6. PACLITAXEL. [Interacting]
     Active Substance: PACLITAXEL
     Indication: KAPOSI^S SARCOMA
     Dosage: 3 HOUR EVERY OTHER WEEK
     Route: 065
  7. PACLITAXEL. [Interacting]
     Active Substance: PACLITAXEL
     Dosage: OVER 3H
     Route: 065
  8. DELAVIRDINE [Interacting]
     Active Substance: DELAVIRDINE
     Indication: ACQUIRED IMMUNODEFICIENCY SYNDROME
     Route: 065
     Dates: start: 199805
  9. STAVUDINE. [Concomitant]
     Active Substance: STAVUDINE
     Indication: ACQUIRED IMMUNODEFICIENCY SYNDROME
  10. ZIDOVUDINE. [Concomitant]
     Active Substance: ZIDOVUDINE
     Indication: ACQUIRED IMMUNODEFICIENCY SYNDROME
  11. DIDANOSINE. [Concomitant]
     Active Substance: DIDANOSINE
     Indication: ACQUIRED IMMUNODEFICIENCY SYNDROME
     Route: 065
     Dates: start: 199701

REACTIONS (6)
  - Drug interaction [Unknown]
  - Alopecia [Unknown]
  - Myalgia [Unknown]
  - Febrile neutropenia [Unknown]
  - Leukopenia [Unknown]
  - Mucosal inflammation [Unknown]
